FAERS Safety Report 9782569 (Version 1)
Quarter: 2013Q4

REPORT INFORMATION
  Report Type: Spontaneous
  Country: FR (occurrence: None)
  Receive Date: 20131220
  Receipt Date: 20131220
  Transmission Date: 20140711
  Serious: Yes (Hospitalization)
  Sender: FDA-Public Use
  Company Number: 1976384

PATIENT
  Age: 41 Year
  Sex: Female

DRUGS (7)
  1. CARBOPLATIN [Suspect]
     Indication: OVARIAN CANCER
     Route: 042
     Dates: start: 20130118, end: 20130118
  2. DEPAKOTE [Concomitant]
  3. BIONOLYTE [Concomitant]
  4. PERFALGAN [Concomitant]
  5. PRIMERAN [Concomitant]
  6. SPASFON [Concomitant]
  7. ACUPAN [Concomitant]

REACTIONS (3)
  - Epilepsy [None]
  - Loss of consciousness [None]
  - Convulsion [None]
